FAERS Safety Report 19202495 (Version 3)
Quarter: 2021Q3

REPORT INFORMATION
  Report Type: Spontaneous
  Country: US (occurrence: US)
  Receive Date: 20210502
  Receipt Date: 20210706
  Transmission Date: 20211014
  Serious: Yes (Other)
  Sender: FDA-Public Use
  Company Number: US-JNJFOC-20210443168

PATIENT
  Sex: Male

DRUGS (1)
  1. BALVERSA [Suspect]
     Active Substance: ERDAFITINIB
     Indication: PRODUCT USED FOR UNKNOWN INDICATION
     Route: 048
     Dates: start: 20210423, end: 20210521

REACTIONS (8)
  - Dysphonia [Recovering/Resolving]
  - Blood phosphorus increased [Recovering/Resolving]
  - Condition aggravated [Unknown]
  - Vomiting [Recovering/Resolving]
  - Taste disorder [Recovering/Resolving]
  - Stomatitis [Recovering/Resolving]
  - Lethargy [Recovering/Resolving]
  - Abdominal pain upper [Recovering/Resolving]
